FAERS Safety Report 9216890 (Version 1)
Quarter: 2013Q2

REPORT INFORMATION
  Report Type: Spontaneous
  Country: US (occurrence: US)
  Receive Date: 20130408
  Receipt Date: 20130408
  Transmission Date: 20140414
  Serious: No
  Sender: FDA-Public Use
  Company Number: US-TEVA-396344USA

PATIENT
  Age: 72 Year
  Sex: Male
  Weight: 79.9 kg

DRUGS (7)
  1. PROAIR HFA [Suspect]
     Indication: PROPHYLAXIS AGAINST BRONCHOSPASM
     Dosage: 3-4 PUFFS PRN
     Route: 055
  2. PROAIR HFA [Suspect]
     Dosage: 1 PUFF PRN
     Route: 055
  3. PLAVIX [Concomitant]
     Indication: CAROTID ARTERY DISEASE
  4. LEVOTHYROXINE [Concomitant]
     Indication: THYROID DISORDER
     Route: 048
  5. OMEPRAZOLE [Concomitant]
     Indication: GASTROOESOPHAGEAL REFLUX DISEASE
     Dosage: 20 MILLIGRAM DAILY;
     Route: 048
  6. IBUPROFEN [Concomitant]
     Indication: PAIN
     Dosage: PRN
  7. AMBIEN [Concomitant]
     Indication: SLEEP DISORDER
     Dosage: 5 MILLIGRAM DAILY; AT BEDTIME
     Route: 048

REACTIONS (6)
  - Respiratory disorder [Recovering/Resolving]
  - Nasopharyngitis [Recovering/Resolving]
  - Drug ineffective [Not Recovered/Not Resolved]
  - Asthma [Unknown]
  - Cough [Unknown]
  - Increased upper airway secretion [Unknown]
